FAERS Safety Report 21002149 (Version 1)
Quarter: 2022Q2

REPORT INFORMATION
  Report Type: Spontaneous
  Country: US (occurrence: US)
  Receive Date: 20220624
  Receipt Date: 20220624
  Transmission Date: 20220721
  Serious: Yes (Other)
  Sender: FDA-Public Use
  Company Number: US-ALEMBIC PHARMACUETICALS LIMITED-2022SCAL000288

PATIENT

DRUGS (3)
  1. MOXIFLOXACIN [Suspect]
     Active Substance: MOXIFLOXACIN
     Indication: Product used for unknown indication
     Dosage: 400 MILLIGRAM
     Route: 065
  2. ISLATRAVIR [Concomitant]
     Active Substance: ISLATRAVIR
     Indication: Product used for unknown indication
     Dosage: 240 MILLIGRAM (SUPRA-THERAPEUTIC DOSE)
     Route: 048
  3. ISLATRAVIR [Concomitant]
     Active Substance: ISLATRAVIR
     Dosage: 0.75 MILLIGRAM (DAILY THERAPEUTIC DOSE)
     Route: 048

REACTIONS (1)
  - Electrocardiogram QT prolonged [Unknown]
